FAERS Safety Report 25975595 (Version 1)
Quarter: 2025Q4

REPORT INFORMATION
  Report Type: Spontaneous
  Country: US (occurrence: US)
  Receive Date: 20251029
  Receipt Date: 20251029
  Transmission Date: 20260117
  Serious: Yes (Other)
  Sender: NOVARTIS
  Company Number: US-002147023-NVSC2025US164089

PATIENT
  Age: 77 Year
  Sex: Male

DRUGS (3)
  1. PLUVICTO [Suspect]
     Active Substance: LUTETIUM LU-177 VIPIVOTIDE TETRAXETAN
     Indication: Hormone-refractory prostate cancer
     Dosage: 200 MCI (AT PRESENTATION;  ADMINISTERED 11.9 WEEKS)
     Route: 065
  2. PLUVICTO [Suspect]
     Active Substance: LUTETIUM LU-177 VIPIVOTIDE TETRAXETAN
     Dosage: 195.1 MCI (AT PRESENTATION;  ADMINISTERED 5.9 WEEKS)
     Route: 065
  3. PLUVICTO [Suspect]
     Active Substance: LUTETIUM LU-177 VIPIVOTIDE TETRAXETAN
     Dosage: UNK (RECEIVED TOTAL 4 CYCLES)
     Route: 065

REACTIONS (3)
  - Hypotony of eye [Recovered/Resolved]
  - Hyphaema [Recovered/Resolved]
  - Anterior segment neovascularisation [Recovered/Resolved]
